FAERS Safety Report 12195122 (Version 2)
Quarter: 2016Q1

REPORT INFORMATION
  Report Type: Spontaneous
  Country: US (occurrence: US)
  Receive Date: 20160321
  Receipt Date: 20160324
  Transmission Date: 20160526
  Serious: Yes (Other)
  Sender: FDA-Public Use
  Company Number: US-PFIZER INC-2016151571

PATIENT
  Age: 80 Year
  Sex: Female
  Weight: 77 kg

DRUGS (1)
  1. IBRANCE [Suspect]
     Active Substance: PALBOCICLIB
     Indication: BREAST CANCER METASTATIC
     Dosage: 75 MG, CYCLIC (DAYS 1-21 EVERY 28 DAYS)
     Route: 048
     Dates: start: 20150917, end: 20160315

REACTIONS (5)
  - Thrombosis [Not Recovered/Not Resolved]
  - Open fracture [Unknown]
  - Breast cancer metastatic [Unknown]
  - Disease progression [Unknown]
  - Cardiac stress test abnormal [Unknown]
